FAERS Safety Report 9742997 (Version 1)
Quarter: 2013Q4

REPORT INFORMATION
  Report Type: Spontaneous
  Country: US (occurrence: US)
  Receive Date: 20131210
  Receipt Date: 20131210
  Transmission Date: 20140711
  Serious: No
  Sender: FDA-Public Use
  Company Number: US-TEVA-379745USA

PATIENT
  Sex: Male

DRUGS (2)
  1. BUDESONIDE [Suspect]
  2. IPRATROPIUM BROMIDE W/SALBUTAMOL [Concomitant]

REACTIONS (2)
  - Epistaxis [Unknown]
  - Drug administration error [Unknown]
